FAERS Safety Report 9790894 (Version 3)
Quarter: 2014Q1

REPORT INFORMATION
  Report Type: Report from Study
  Country: AU (occurrence: AU)
  Receive Date: 20131231
  Receipt Date: 20140127
  Transmission Date: 20141002
  Serious: Yes (Death)
  Sender: FDA-Public Use
  Company Number: AU-PFIZER INC-2013371890

PATIENT
  Age: 11 Day
  Sex: Female
  Weight: .83 kg

DRUGS (6)
  1. GENTAMICIN SULFATE [Suspect]
     Indication: EVIDENCE BASED TREATMENT
     Dosage: UNK
  2. GENTAMICIN SULFATE [Suspect]
     Indication: STAPHYLOCOCCAL INFECTION
  3. VANCOMYCIN [Suspect]
     Indication: EVIDENCE BASED TREATMENT
     Dosage: UNK
  4. VANCOMYCIN [Suspect]
     Indication: STAPHYLOCOCCAL INFECTION
  5. MEROPENEM [Suspect]
     Indication: EVIDENCE BASED TREATMENT
     Dosage: UNK
  6. MEROPENEM [Suspect]
     Indication: STAPHYLOCOCCAL INFECTION

REACTIONS (1)
  - Drug ineffective [Fatal]
